FAERS Safety Report 19209321 (Version 1)
Quarter: 2021Q2

REPORT INFORMATION
  Report Type: Spontaneous
  Country: JP (occurrence: JP)
  Receive Date: 20210504
  Receipt Date: 20210504
  Transmission Date: 20210717
  Serious: Yes (Other)
  Sender: FDA-Public Use
  Company Number: JP-STRIDES ARCOLAB LIMITED-2021SP005013

PATIENT
  Age: 28 Year
  Sex: Female

DRUGS (6)
  1. METYRAPONE [Concomitant]
     Active Substance: METYRAPONE
     Indication: HYPERADRENOCORTICISM
     Dosage: 1500 MILLIGRAM PER DAY
     Route: 065
  2. HYDROCORTISONE. [Interacting]
     Active Substance: HYDROCORTISONE
     Dosage: UNK, MORNING AND EVENING
     Route: 065
  3. YAZ [Interacting]
     Active Substance: DROSPIRENONE\ETHINYL ESTRADIOL
     Indication: HEAVY MENSTRUAL BLEEDING
     Dosage: 1 DOSAGE FORM
     Route: 048
  4. HYDROCORTISONE. [Interacting]
     Active Substance: HYDROCORTISONE
     Indication: SECONDARY ADRENOCORTICAL INSUFFICIENCY
     Dosage: 15 MILLIGRAM PER DAY
     Route: 065
  5. AMLODIPINE [Concomitant]
     Active Substance: AMLODIPINE BESYLATE
     Indication: HYPERTENSION
     Dosage: 5 MILLIGRAM PER DAY
     Route: 065
  6. HYDROCORTISONE. [Suspect]
     Active Substance: HYDROCORTISONE
     Indication: HYPERADRENOCORTICISM
     Dosage: 20 MILLIGRAM PER DAY
     Route: 065

REACTIONS (4)
  - Secondary adrenocortical insufficiency [Recovered/Resolved]
  - Drug interaction [Unknown]
  - Cortisol increased [Recovered/Resolved]
  - Condition aggravated [Recovered/Resolved]
